FAERS Safety Report 6203327-6 (Version None)
Quarter: 2009Q2

REPORT INFORMATION
  Report Type: 
  Country: None (occurrence: None)
  Receive Date: 20090527
  Receipt Date: 20090521
  Transmission Date: 20091009
  Serious: Yes (Death, Hospitalization)
  Sender: FDA-Public Use
  Company Number: PHHY2009JP19992

PATIENT
  Sex: Male
  Weight: 55 kg

DRUGS (6)
  1. DIOVAN T30230+TAB+HY [Suspect]
     Indication: HYPERTENSION
     Dosage: 80 MG, QD
     Route: 048
     Dates: start: 20071006
  2. TAKEPRON [Concomitant]
     Route: 048
     Dates: start: 20070903
  3. SPIRIVA [Concomitant]
     Dates: start: 20070903
  4. DIART [Concomitant]
     Route: 048
     Dates: start: 20070903
  5. ISOSORBIDE DINITRATE [Concomitant]
     Route: 048
     Dates: start: 20070903
  6. ZYLORIC ^FRESENIUS^ [Concomitant]
     Route: 048
     Dates: start: 20070903

REACTIONS (1)
  - PNEUMONIA [None]
